FAERS Safety Report 9817959 (Version 1)
Quarter: 2014Q1

REPORT INFORMATION
  Report Type: Spontaneous
  Country: US (occurrence: US)
  Receive Date: 20140115
  Receipt Date: 20140115
  Transmission Date: 20141002
  Serious: Yes (Other)
  Sender: FDA-Public Use
  Company Number: US-BAYER-2014-006612

PATIENT
  Age: 26 Year
  Sex: Female

DRUGS (17)
  1. YAZ [Suspect]
  2. GIANVI [Suspect]
  3. SEROQUEL [Concomitant]
     Dosage: 300 MG, UNK
     Route: 048
  4. WELLBUTRIN XL [Concomitant]
     Dosage: 300 MG, UNK
     Route: 048
  5. EFFEXOR XR [Concomitant]
     Dosage: 150 MG, UNK
     Route: 048
  6. HYDROCHLOROTHIAZIDE [Concomitant]
  7. KLONOPIN [Concomitant]
     Indication: SLEEP DISORDER
     Dosage: 0.5 MG, UNK
     Route: 048
  8. LORTAB [Concomitant]
     Indication: HEADACHE
     Dosage: 500 MG, UNK
     Route: 048
  9. SUMATRIPTAN [Concomitant]
     Dosage: 100 MG, UNK
     Route: 042
  10. ROCEPHIN [Concomitant]
     Dosage: 1 G, BID
     Route: 042
  11. DILAUDID [Concomitant]
     Indication: PAIN MANAGEMENT
     Route: 042
  12. DEMEROL [Concomitant]
     Indication: PAIN MANAGEMENT
     Route: 042
  13. CLOBETASOL [Concomitant]
  14. PHENERGAN [Concomitant]
     Indication: NAUSEA
     Dosage: 25 MG, UNK
     Route: 048
  15. ZANTAC [Concomitant]
     Dosage: 150 MG, UNK
     Route: 048
  16. SUDAFED [Concomitant]
     Dosage: 25 MG, UNK
     Route: 048
  17. ZOFRAN [Concomitant]

REACTIONS (3)
  - Deep vein thrombosis [Recovered/Resolved]
  - Thrombophlebitis superficial [None]
  - Off label use [None]
